FAERS Safety Report 5136217-0 (Version None)
Quarter: 2006Q4

REPORT INFORMATION
  Report Type: 
  Country: None (occurrence: None)
  Receive Date: 20061027
  Receipt Date: 20061018
  Transmission Date: 20070319
  Serious: Yes (Hospitalization)
  Sender: FDA-Public Use
  Company Number: IT-ROCHE-467805

PATIENT
  Age: 85 Year
  Sex: Male

DRUGS (6)
  1. TICLID [Suspect]
     Indication: IMMOBILISATION PROLONGED
     Route: 048
     Dates: start: 20060101, end: 20060927
  2. TRINIPLAS [Concomitant]
     Route: 062
  3. SPIROFUR [Concomitant]
     Dosage: TOTAL DAILY DOSE ALSO REPORTED AS 50+20 MG/DAY PO
     Route: 048
  4. THEO-DUR [Concomitant]
     Route: 048
  5. LANSOPRAZOLE [Concomitant]
     Route: 048
  6. NORVASC [Concomitant]
     Route: 048

REACTIONS (2)
  - LEUKOPENIA [None]
  - RESPIRATORY FAILURE [None]
